FAERS Safety Report 7445557-1 (Version None)
Quarter: 2011Q2

REPORT INFORMATION
  Report Type: 
  Country: None (occurrence: None)
  Receive Date: 20110420
  Receipt Date: 20110407
  Transmission Date: 20111010
  Serious: Yes (Hospitalization)
  Sender: FDA-Public Use
  Company Number: 030413

PATIENT
  Sex: Male

DRUGS (2)
  1. KEPPRA [Suspect]
     Indication: EPILEPSY
     Dosage: 1500 MG BID, ORAL
     Route: 048
     Dates: start: 20100401, end: 20110322
  2. MIRTAZAPINE [Concomitant]

REACTIONS (2)
  - INTENTIONAL SELF-INJURY [None]
  - AGITATION [None]
